FAERS Safety Report 4676036-2 (Version None)
Quarter: 2005Q2

REPORT INFORMATION
  Report Type: 
  Country: None (occurrence: None)
  Receive Date: 20050527
  Receipt Date: 20050427
  Transmission Date: 20051028
  Serious: No
  Sender: FDA-Public Use
  Company Number: US-GLAXOSMITHKLINE-A0556022A

PATIENT
  Age: 60 Year
  Sex: Female

DRUGS (5)
  1. WELLBUTRIN XL [Suspect]
     Indication: DEPRESSION
     Dosage: 150MG PER DAY
     Route: 048
     Dates: start: 20050309
  2. ZOLOFT [Concomitant]
  3. CRESTOR [Concomitant]
  4. NEXIUM [Concomitant]
  5. ACTONEL [Concomitant]

REACTIONS (9)
  - ANOREXIA [None]
  - DRY MOUTH [None]
  - HYPERHIDROSIS [None]
  - MUSCLE TWITCHING [None]
  - NAUSEA [None]
  - POLLAKIURIA [None]
  - RASH [None]
  - TREMOR [None]
  - WEIGHT DECREASED [None]
